FAERS Safety Report 6929225-8 (Version None)
Quarter: 2010Q3

REPORT INFORMATION
  Report Type: 
  Country: None (occurrence: None)
  Receive Date: 20100817
  Receipt Date: 20100804
  Transmission Date: 20110219
  Serious: Yes (Other)
  Sender: FDA-Public Use
  Company Number: JP-ABBOTT-00I-087-0087224-00

PATIENT
  Sex: Male

DRUGS (13)
  1. LUPLIN FOR INJECTION KIT 3.75 [Suspect]
     Indication: PROSTATE CANCER
     Route: 058
     Dates: start: 19990830, end: 19991230
  2. CALSLOT [Suspect]
     Indication: PRODUCT USED FOR UNKNOWN INDICATION
     Route: 048
     Dates: start: 19960921, end: 20000125
  3. CHLORMADINONE ACETATE TAB [Concomitant]
     Indication: PRODUCT USED FOR UNKNOWN INDICATION
     Dosage: NOT REPORTED
     Dates: start: 19990830
  4. MANIDIPINE HYDROCHLORIDE [Concomitant]
     Indication: HYPERTENSION
     Dosage: NOT REPORTED
     Dates: start: 19960921, end: 20000125
  5. VITAMIN B COMPLEX CAP [Concomitant]
     Indication: PRODUCT USED FOR UNKNOWN INDICATION
     Dosage: NOT REPORTED
     Dates: start: 19960902
  6. EPERISONE HYDROCHLORIDE [Concomitant]
     Indication: PRODUCT USED FOR UNKNOWN INDICATION
     Route: 048
     Dates: start: 19950407
  7. MECOBALAMIN [Concomitant]
     Indication: PRODUCT USED FOR UNKNOWN INDICATION
     Dosage: NOT REPORTED
     Dates: start: 19950407
  8. ALDIOXA [Concomitant]
     Indication: PRODUCT USED FOR UNKNOWN INDICATION
     Route: 048
     Dates: start: 19950407
  9. OTHER ANALGESICS AND ANTIPYRETICS [Concomitant]
     Indication: PRODUCT USED FOR UNKNOWN INDICATION
     Dosage: NOT REPORTED
  10. OTHER ANTIINFLAMMATORY AGENTS IN COMB. [Concomitant]
     Indication: PRODUCT USED FOR UNKNOWN INDICATION
     Dosage: NOT REPORTED
  11. ALIARON 3B [Concomitant]
     Indication: PRODUCT USED FOR UNKNOWN INDICATION
     Route: 042
     Dates: start: 19960902
  12. YOUCOBAL [Concomitant]
     Indication: PRODUCT USED FOR UNKNOWN INDICATION
     Route: 048
     Dates: start: 19950407
  13. KASHIWADOL [Concomitant]
     Indication: PRODUCT USED FOR UNKNOWN INDICATION
     Route: 042
     Dates: start: 19990910

REACTIONS (2)
  - DYSPNOEA [None]
  - SUPRAVENTRICULAR TACHYCARDIA [None]
